FAERS Safety Report 7642361-6 (Version None)
Quarter: 2011Q3

REPORT INFORMATION
  Report Type: 
  Country: None (occurrence: None)
  Receive Date: 20110728
  Receipt Date: 20110725
  Transmission Date: 20111222
  Serious: Yes (Death)
  Sender: FDA-Public Use
  Company Number: US-B.I. PHARMACEUTICALS,INC./RIDGEFIELD-2011-BP-14441BP

PATIENT
  Sex: Female
  Weight: 89.7 kg

DRUGS (17)
  1. VALIUM [Concomitant]
     Dosage: 2.5 MG
     Route: 048
  2. ABILIFY [Concomitant]
     Dosage: 5 MG
     Route: 048
  3. LASIX [Concomitant]
     Dosage: 40 MG
     Route: 048
  4. VITAMIN D [Concomitant]
     Dosage: 5000 U
     Route: 048
  5. CYMBALTA [Concomitant]
     Dosage: 30 MG
     Route: 048
  6. DUONEB [Concomitant]
     Route: 055
  7. MARINOL [Concomitant]
     Dosage: 10 MG
     Route: 048
  8. LIBRAX [Concomitant]
     Dosage: 15 MG
     Route: 048
  9. LOPRESSOR [Concomitant]
     Dosage: 50 MG
     Route: 048
  10. PRADAXA [Suspect]
     Dosage: 300 MG
     Dates: start: 20110331
  11. KLOR-CON [Concomitant]
     Route: 048
  12. PROTONIX [Concomitant]
     Dosage: 40 MG
     Route: 048
  13. ACTOS [Concomitant]
     Dosage: 15 MG
     Route: 048
  14. SPIRIVA [Concomitant]
     Dosage: 18 MCG
     Route: 055
  15. ULTRAM [Concomitant]
     Dosage: 100 MG
     Route: 048
  16. PRADAXA [Suspect]
     Dosage: 150 MG
  17. LOMOTIL [Concomitant]
     Route: 048

REACTIONS (1)
  - DEATH [None]
